FAERS Safety Report 6669405-2 (Version None)
Quarter: 2010Q2

REPORT INFORMATION
  Report Type: 
  Country: None (occurrence: None)
  Receive Date: 20100402
  Receipt Date: 20100322
  Transmission Date: 20101027
  Serious: Yes (Hospitalization, Other)
  Sender: FDA-Public Use
  Company Number: CERZ-1000841

PATIENT
  Age: 48 Year
  Sex: Female
  Weight: 56.8 kg

DRUGS (7)
  1. CEREZYME [Suspect]
     Indication: GAUCHER'S DISEASE
     Dosage: 3400 U, Q2W, INTRAVENOUS
     Route: 042
     Dates: start: 19940101
  2. COPAXONE [Concomitant]
  3. METFORMIN HCL [Concomitant]
  4. LISINOPRIL AND HYDROCHLOROTHIAZIDE [Concomitant]
  5. BYSTOLIC (BYSTOLIC) [Concomitant]
  6. ASPIRIN [Concomitant]
  7. ATIVAN [Concomitant]

REACTIONS (1)
  - MULTIPLE SCLEROSIS RELAPSE [None]
